FAERS Safety Report 6516779-9 (Version None)
Quarter: 2009Q4

REPORT INFORMATION
  Report Type: 
  Country: None (occurrence: None)
  Receive Date: 20091223
  Receipt Date: 20091211
  Transmission Date: 20100525
  Serious: Yes (Hospitalization)
  Sender: FDA-Public Use
  Company Number: CA-JNJFOC-20091205957

PATIENT
  Age: 50 Year
  Sex: Male

DRUGS (5)
  1. RALIVIA [Suspect]
     Indication: DRUG USE FOR UNKNOWN INDICATION
     Route: 048
  2. AVAPRO [Concomitant]
     Route: 065
  3. OXYCODONE HCL AND ACETAMINOPHEN [Concomitant]
     Route: 065
  4. GABAPENTIN [Concomitant]
     Route: 065
  5. TIAZAC [Concomitant]
     Route: 065

REACTIONS (3)
  - APNOEA [None]
  - CONVULSION [None]
  - RESPIRATORY DEPRESSION [None]
